FAERS Safety Report 5293388-3 (Version None)
Quarter: 2007Q2

REPORT INFORMATION
  Report Type: 
  Country: None (occurrence: None)
  Receive Date: 20070411
  Receipt Date: 20070409
  Transmission Date: 20071010
  Serious: Yes (Other)
  Sender: FDA-Public Use
  Company Number: US-JNJFOC-20070303673

PATIENT
  Sex: Female
  Weight: 61.24 kg

DRUGS (7)
  1. TOPAMAX [Suspect]
  2. TOPAMAX [Suspect]
     Indication: MIGRAINE PROPHYLAXIS
  3. LISINOPRIL [Concomitant]
     Indication: MIGRAINE
     Route: 048
  4. BONIVA [Concomitant]
     Indication: OSTEOPOROSIS
  5. VITAMINS [Concomitant]
     Indication: NUTRITIONAL SUPPORT
  6. OMEGA 369 [Concomitant]
     Indication: NUTRITIONAL SUPPORT
  7. RELPAX [Concomitant]
     Indication: HEADACHE

REACTIONS (5)
  - ANGLE CLOSURE GLAUCOMA [None]
  - CATARACT [None]
  - DEPRESSION [None]
  - HEADACHE [None]
  - PUPIL FIXED [None]
